FAERS Safety Report 5062573-8 (Version None)
Quarter: 2006Q3

REPORT INFORMATION
  Report Type: 
  Country: None (occurrence: None)
  Receive Date: 20060726
  Receipt Date: 20060720
  Transmission Date: 20061208
  Serious: Yes (Other)
  Sender: FDA-Public Use
  Company Number: 2006SE04032

PATIENT
  Age: 77 Year
  Sex: Female

DRUGS (3)
  1. BLOPRESS [Suspect]
     Indication: OEDEMA
     Route: 048
     Dates: start: 20060524, end: 20060524
  2. BLOPRESS [Suspect]
     Indication: CARDIAC FAILURE
     Route: 048
     Dates: start: 20060524, end: 20060524
  3. VASOLAN [Concomitant]
     Route: 065

REACTIONS (2)
  - BLOOD PRESSURE INCREASED [None]
  - CARDIAC FAILURE [None]
